FAERS Safety Report 7173894-7 (Version None)
Quarter: 2010Q4

REPORT INFORMATION
  Report Type: 
  Country: None (occurrence: None)
  Receive Date: 20101219
  Receipt Date: 20100312
  Transmission Date: 20110411
  Serious: No
  Sender: FDA-Public Use
  Company Number: US-AMGEN-KDL399418

PATIENT

DRUGS (2)
  1. ENBREL [Suspect]
     Indication: RHEUMATOID ARTHRITIS
     Dosage: 50 MG, QWK
     Route: 058
     Dates: start: 20091120
  2. HYDROXYCHLOROQUINE SULFATE [Concomitant]
     Dosage: 400 MG, QD
     Route: 048

REACTIONS (5)
  - CHILLS [None]
  - COUGH [None]
  - NO THERAPEUTIC RESPONSE [None]
  - RESPIRATORY TRACT CONGESTION [None]
  - WHEEZING [None]
